FAERS Safety Report 20160476 (Version 1)
Quarter: 2021Q4

REPORT INFORMATION
  Report Type: Spontaneous
  Country: US (occurrence: None)
  Receive Date: 20211208
  Receipt Date: 20211208
  Transmission Date: 20220303
  Serious: Yes (Other)
  Sender: FDA-Public Use
  Company Number: US-Hikma Pharmaceuticals USA Inc.-US-H14001-21-05239

PATIENT
  Age: 4 Year
  Sex: Male

DRUGS (2)
  1. ZOLEDRONIC ACID [Suspect]
     Active Substance: ZOLEDRONIC ACID
     Indication: Product used for unknown indication
     Dosage: UNKNOWN
     Route: 041
  2. OCTREOTIDE [Concomitant]
     Active Substance: OCTREOTIDE
     Indication: Blood growth hormone increased
     Dosage: UNKNOWN
     Route: 065

REACTIONS (5)
  - Electrolyte imbalance [Unknown]
  - Acidosis hyperchloraemic [Unknown]
  - Hypokalaemia [Unknown]
  - Proteinuria [Unknown]
  - Fanconi syndrome [Recovered/Resolved]
